FAERS Safety Report 17622610 (Version 3)
Quarter: 2020Q2

REPORT INFORMATION
  Report Type: Spontaneous
  Country: DK (occurrence: DK)
  Receive Date: 20200403
  Receipt Date: 20200609
  Transmission Date: 20200713
  Serious: Yes (Life-Threatening)
  Sender: FDA-Public Use
  Company Number: DK-PFIZER INC-2020136794

PATIENT
  Age: 79 Year
  Sex: Male

DRUGS (12)
  1. ECALTA [Suspect]
     Active Substance: ANIDULAFUNGIN
     Indication: FUNGAL INFECTION
     Dosage: 50 ML, SINGLE (PRESCRIBED DOSE: 200 MG I.V.)
     Route: 042
     Dates: start: 20200209, end: 20200209
  2. ENALAPRIL [Concomitant]
     Active Substance: ENALAPRIL
     Indication: HYPERTENSION
     Dosage: 5 MG, 1X/DAY
     Route: 048
     Dates: start: 20181024
  3. COLCHICINE. [Concomitant]
     Active Substance: COLCHICINE
     Indication: ARTHRITIS
     Dosage: 1000 UG, AS NEEDED
     Route: 048
     Dates: start: 20190722
  4. FOLIC ACID. [Concomitant]
     Active Substance: FOLIC ACID
     Indication: FOLATE DEFICIENCY
     Dosage: 1 MG, 1X/DAY
     Route: 048
     Dates: start: 20180514
  5. HYDROXOCOBALAMIN [Concomitant]
     Active Substance: HYDROXOCOBALAMIN
     Indication: VITAMIN B12 DEFICIENCY
     Dosage: 1 DF, EVERY 3 MONTHS
     Route: 030
     Dates: start: 20190509
  6. HJERTEMAGNYL [Concomitant]
     Indication: THROMBOSIS PROPHYLAXIS
     Dosage: 75 MG, 1X/DAY
     Route: 048
     Dates: start: 20180523
  7. FLUCLOXACILLIN [Concomitant]
     Active Substance: FLUCLOXACILLIN
     Indication: ARTHRITIS INFECTIVE
     Dosage: 4000 MG, 1X/DAY
     Route: 048
     Dates: start: 20200309
  8. POTASSIUM CHLORIDE. [Concomitant]
     Active Substance: POTASSIUM CHLORIDE
     Indication: MINERAL SUPPLEMENTATION
     Dosage: 750 MG, 1X/DAY
     Route: 048
     Dates: start: 20200228
  9. TRAMADOL. [Concomitant]
     Active Substance: TRAMADOL
     Indication: PAIN
     Dosage: 50 MG, AS NEEDED
     Route: 048
     Dates: start: 20191125
  10. PANTOPRAZOLE [Concomitant]
     Active Substance: PANTOPRAZOLE
     Indication: PROPHYLAXIS AGAINST GASTROINTESTINAL ULCER
     Dosage: 20 MG, 1X/DAY
     Route: 048
     Dates: start: 20191023
  11. PARACETAMOL [Concomitant]
     Active Substance: ACETAMINOPHEN
     Indication: PAIN
     Dosage: 4000 MG, 1X/DAY
     Route: 048
     Dates: start: 20200213
  12. METOPROLOL. [Concomitant]
     Active Substance: METOPROLOL
     Indication: ARRHYTHMIA
     Dosage: 50 MG, 1X/DAY
     Route: 048
     Dates: start: 20190912

REACTIONS (8)
  - Hyperventilation [Unknown]
  - Blood pressure increased [Unknown]
  - Pyrexia [Unknown]
  - Dyspnoea [Recovered/Resolved]
  - Palpitations [Unknown]
  - Hypersensitivity [Unknown]
  - Heart rate increased [Recovered/Resolved]
  - Blood sodium increased [Unknown]

NARRATIVE: CASE EVENT DATE: 20200209
